FAERS Safety Report 23544984 (Version 1)
Quarter: 2024Q1

REPORT INFORMATION
  Report Type: Spontaneous
  Country: US (occurrence: US)
  Receive Date: 20240220
  Receipt Date: 20240220
  Transmission Date: 20240410
  Serious: No
  Sender: FDA-Public Use
  Company Number: US-SA-SAC20240213001062

PATIENT
  Age: 45 Year
  Sex: Male

DRUGS (2)
  1. DUPIXENT [Suspect]
     Active Substance: DUPILUMAB
     Indication: Dermatitis atopic
     Dosage: 300 MG, QOW
     Route: 058
     Dates: start: 202206, end: 202311
  2. DUPIXENT [Suspect]
     Active Substance: DUPILUMAB
     Dosage: UNK
     Route: 065

REACTIONS (6)
  - Dermatitis atopic [Unknown]
  - Skin fissures [Unknown]
  - Eyelid skin dryness [Unknown]
  - Dry skin [Unknown]
  - Skin exfoliation [Unknown]
  - Dry eye [Unknown]

NARRATIVE: CASE EVENT DATE: 20231101
